FAERS Safety Report 5777206-2 (Version None)
Quarter: 2008Q2

REPORT INFORMATION
  Report Type: 
  Country: None (occurrence: None)
  Receive Date: 20080618
  Receipt Date: 20080606
  Transmission Date: 20081010
  Serious: Yes (Hospitalization, Other)
  Sender: FDA-Public Use
  Company Number: US-ELI_LILLY_AND_COMPANY-US200806001581

PATIENT
  Sex: Male

DRUGS (3)
  1. BYETTA [Suspect]
     Indication: TYPE 1 DIABETES MELLITUS
     Dosage: UNK, UNK
     Route: 058
  2. BYETTA [Suspect]
     Dosage: 5 UG, 2/D
     Route: 058
  3. BYETTA [Suspect]
     Dosage: UNK, UNK
     Route: 058
     Dates: start: 20080524, end: 20080524

REACTIONS (8)
  - ACCIDENTAL OVERDOSE [None]
  - HEADACHE [None]
  - HYPOCALCAEMIA [None]
  - MALAISE [None]
  - MEDICATION ERROR [None]
  - NAUSEA [None]
  - TACHYCARDIA [None]
  - VOMITING [None]
